FAERS Safety Report 21252432 (Version 1)
Quarter: 2022Q3

REPORT INFORMATION
  Report Type: Spontaneous
  Country: FR (occurrence: FR)
  Receive Date: 20220825
  Receipt Date: 20220825
  Transmission Date: 20221027
  Serious: Yes (Life-Threatening)
  Sender: FDA-Public Use
  Company Number: FR-SUN PHARMACEUTICAL INDUSTRIES LTD-2022RR-349681

PATIENT
  Age: 52 Year
  Sex: Male
  Weight: 100 kg

DRUGS (17)
  1. QUETIAPINE [Suspect]
     Active Substance: QUETIAPINE
     Indication: Schizophrenia
     Dosage: 300 MILLIGRAM, DAILY, AT BEDTIME
     Route: 048
     Dates: end: 20220520
  2. ROSUVASTATIN CALCIUM [Suspect]
     Active Substance: ROSUVASTATIN CALCIUM
     Indication: Hypercholesterolaemia
     Dosage: 20 MILLIGRAM, DAILY, EVENING
     Route: 048
     Dates: end: 20220520
  3. ESOMEPRAZOLE [Suspect]
     Active Substance: ESOMEPRAZOLE
     Indication: Gastroduodenal ulcer
     Dosage: 40 MILLIGRAM, DAILY, EVENING
     Route: 048
     Dates: end: 20220520
  4. ANETHOLTRITHION [Suspect]
     Active Substance: ANETHOLTRITHION
     Indication: Product used for unknown indication
     Dosage: 25 MG - 2 TABLETS MORNING NOON EVENING
     Route: 048
     Dates: end: 20220520
  5. ZUCLOPENTHIXOL [Suspect]
     Active Substance: ZUCLOPENTHIXOL
     Indication: Schizophrenia
     Dosage: 1 DAY/MONTH
     Route: 030
     Dates: end: 20220520
  6. LOXAPINE [Suspect]
     Active Substance: LOXAPINE
     Indication: Schizophrenia
     Dosage: 100 MILLIGRAM, DAILY, AT BEDTIME
     Route: 048
     Dates: end: 20220520
  7. SERETIDE [Suspect]
     Active Substance: FLUTICASONE PROPIONATE\SALMETEROL XINAFOATE
     Indication: Asthma
     Dosage: 2 INHALATIONS MORNING AND EVENING
     Route: 049
     Dates: end: 20220520
  8. FOLIC ACID [Suspect]
     Active Substance: FOLIC ACID
     Indication: Product used for unknown indication
     Dosage: 5 MG MORNING EVENING
     Route: 048
     Dates: end: 20220520
  9. LORMETAZEPAM [Suspect]
     Active Substance: LORMETAZEPAM
     Indication: Product used for unknown indication
     Dosage: 2 MILLIGRAM, DAILY, AT BEDTIME
     Route: 048
     Dates: end: 20220520
  10. DIOSMIN\HESPERIDIN [Suspect]
     Active Substance: DIOSMIN\HESPERIDIN
     Indication: Product used for unknown indication
     Dosage: 500 MG MORNING AND EVENING
     Route: 048
     Dates: end: 20220520
  11. VALPROATE SODIUM [Suspect]
     Active Substance: VALPROATE SODIUM
     Indication: Epilepsy
     Dosage: 1G MORNING AND EVENING
     Route: 048
     Dates: end: 20220520
  12. DISULFIRAM [Suspect]
     Active Substance: DISULFIRAM
     Indication: Alcoholism
     Dosage: 500 MILLIGRAM, DAILY, MORNING
     Route: 048
     Dates: end: 20220520
  13. ALBUTEROL [Suspect]
     Active Substance: ALBUTEROL
     Indication: Asthma
     Dosage: 100 MCG, UNK
     Route: 048
     Dates: end: 20220520
  14. PROPRANOLOL HYDROCHLORIDE [Suspect]
     Active Substance: PROPRANOLOL HYDROCHLORIDE
     Indication: Hypertension
     Dosage: 40 MILLIGRAM, DAILY, MORNING
     Route: 048
     Dates: end: 20220520
  15. LOXAPINE [Suspect]
     Active Substance: LOXAPINE
     Indication: Schizophrenia
     Dosage: 25 MG MORNING AND NOON
     Route: 048
     Dates: end: 20220520
  16. TRIHEXYPHENIDYL HYDROCHLORIDE [Suspect]
     Active Substance: TRIHEXYPHENIDYL HYDROCHLORIDE
     Indication: Parkinsonism
     Dosage: 5 MG MORNING AND EVENING
     Route: 048
     Dates: end: 20220520
  17. OXAZEPAM [Concomitant]
     Active Substance: OXAZEPAM
     Indication: Alcohol withdrawal syndrome
     Dosage: 2 TABLETS OF 50MG MORNING NOON AND EVENING
     Route: 048
     Dates: end: 20220520

REACTIONS (1)
  - Hypovolaemic shock [Recovering/Resolving]

NARRATIVE: CASE EVENT DATE: 20220520
